FAERS Safety Report 22360468 (Version 1)
Quarter: 2023Q2

REPORT INFORMATION
  Report Type: Spontaneous
  Country: US (occurrence: US)
  Receive Date: 20230524
  Receipt Date: 20230524
  Transmission Date: 20230722
  Serious: No
  Sender: FDA-Public Use
  Company Number: US-PFIZER INC-2020047848

PATIENT
  Age: 64 Year
  Sex: Female
  Weight: 104 kg

DRUGS (2)
  1. IBRANCE [Suspect]
     Active Substance: PALBOCICLIB
     Indication: Breast cancer metastatic
     Dosage: 125 MG, ONCE DAILY WITH FOOD (21 DAYS ON, 7 DAYS OFF)
     Route: 048
     Dates: start: 201902
  2. FEMARA [Concomitant]
     Active Substance: LETROZOLE
     Indication: Breast cancer metastatic
     Dosage: 2.5 MG D1-28 Q28 DAYS
     Route: 048
     Dates: start: 20190201

REACTIONS (1)
  - Lymphoedema [Unknown]
